FAERS Safety Report 16135149 (Version 1)
Quarter: 2019Q1

REPORT INFORMATION
  Report Type: Report from Study
  Country: US (occurrence: US)
  Receive Date: 20190329
  Receipt Date: 20190329
  Transmission Date: 20190418
  Serious: Yes (Death)
  Sender: FDA-Public Use
  Company Number: US-TESARO-2018-TSO1365-US

PATIENT
  Sex: Female

DRUGS (1)
  1. ZEJULA [Suspect]
     Active Substance: NIRAPARIB
     Indication: OVARIAN CANCER
     Dosage: TAKE 2 CAPSULES BY MOUTH ONCE DAILY
     Route: 048
     Dates: start: 20180920, end: 2018

REACTIONS (1)
  - Death [Fatal]
